FAERS Safety Report 9586157 (Version 1)
Quarter: 2013Q4

REPORT INFORMATION
  Report Type: Spontaneous
  Country: MX (occurrence: MX)
  Receive Date: 20131003
  Receipt Date: 20131003
  Transmission Date: 20140711
  Serious: Yes (Hospitalization, Other)
  Sender: FDA-Public Use
  Company Number: MX-UCBSA-098966

PATIENT
  Age: 22 Year
  Sex: Female

DRUGS (6)
  1. LACOSAMIDE [Suspect]
  2. LACOSAMIDE [Suspect]
  3. LEVETIRACETAM [Suspect]
  4. LEVETIRACETAM [Suspect]
  5. LEVETIRACETAM [Suspect]
  6. ALPRAZOLAM [Concomitant]
     Indication: INSOMNIA
     Dosage: DAILY DOSE: 2 MG

REACTIONS (6)
  - Acute hepatic failure [Recovering/Resolving]
  - Status epilepticus [Recovering/Resolving]
  - Syncope [Recovering/Resolving]
  - Dizziness [Recovering/Resolving]
  - Disorientation [Recovering/Resolving]
  - Somnolence [Recovering/Resolving]
